FAERS Safety Report 4457341-1 (Version None)
Quarter: 2004Q3

REPORT INFORMATION
  Report Type: 
  Country: None (occurrence: None)
  Receive Date: 20040922
  Receipt Date: 20040913
  Transmission Date: 20050211
  Serious: Yes (Death, Hospitalization, Other)
  Sender: FDA-Public Use
  Company Number: US-JNJFOC-20040903486

PATIENT
  Age: 54 Year
  Sex: Female

DRUGS (6)
  1. ACETAMINOPHEN/DIPHENHYDRAMINE (ACETAMINOPHEN/DIPHENHYDRAMINE HCL) [Suspect]
     Indication: SUICIDE ATTEMPT
  2. DIAZEPAM [Suspect]
     Indication: SUICIDE ATTEMPT
     Dosage: ORAL
     Route: 048
  3. TRAMADOL HCL [Suspect]
     Indication: SUICIDE ATTEMPT
     Dosage: ORAL
     Route: 048
  4. SERTRALINE HYDROCHLORIDE [Suspect]
     Indication: SUICIDE ATTEMPT
  5. VALSARTAN (VALSARTAN) [Suspect]
     Indication: SUICIDE ATTEMPT
     Dosage: ORAL
     Route: 048
  6. ASPIRIN [Concomitant]
     Indication: SUICIDE ATTEMPT
     Dosage: ORAL
     Route: 048

REACTIONS (8)
  - COMA [None]
  - DEPRESSED LEVEL OF CONSCIOUSNESS [None]
  - DRUG SCREEN POSITIVE [None]
  - HEPATIC FAILURE [None]
  - HYPOTENSION [None]
  - LOWER GASTROINTESTINAL HAEMORRHAGE [None]
  - RENAL FAILURE [None]
  - RESPIRATORY DEPRESSION [None]
